FAERS Safety Report 7159055-6 (Version None)
Quarter: 2010Q4

REPORT INFORMATION
  Report Type: 
  Country: None (occurrence: None)
  Receive Date: 20101214
  Receipt Date: 20101203
  Transmission Date: 20110411
  Serious: Yes (Other)
  Sender: FDA-Public Use
  Company Number: US-ELI_LILLY_AND_COMPANY-US201012001446

PATIENT
  Sex: Female

DRUGS (1)
  1. HUMALOG [Suspect]
     Indication: DIABETES MELLITUS
     Dosage: UNK, AS NEEDED

REACTIONS (5)
  - ANIMAL BITE [None]
  - COUGH [None]
  - MALAISE [None]
  - NASOPHARYNGITIS [None]
  - PHARYNGEAL DISORDER [None]
